FAERS Safety Report 18035478 (Version 1)
Quarter: 2020Q3

REPORT INFORMATION
  Report Type: Spontaneous
  Country: US (occurrence: US)
  Receive Date: 20200716
  Receipt Date: 20200716
  Transmission Date: 20201103
  Serious: No
  Sender: FDA-Public Use
  Company Number: None

PATIENT
  Age: 84 Year
  Sex: Male
  Weight: 55 kg

DRUGS (1)
  1. PEMBROLIZUMAB (PEMBROLIZUMAB 50MG/VIL INJ) [Suspect]
     Active Substance: PEMBROLIZUMAB
     Indication: URETHRAL DISORDER
     Dosage: ?          OTHER FREQUENCY:OTHER;?
     Route: 042
     Dates: start: 20200227, end: 20200408

REACTIONS (10)
  - Vision blurred [None]
  - Blood creatine phosphokinase increased [None]
  - Guillain-Barre syndrome [None]
  - Dry eye [None]
  - Hyponatraemia [None]
  - Myasthenia gravis [None]
  - Supranuclear palsy [None]
  - IVth nerve paralysis [None]
  - Extraocular muscle disorder [None]
  - Myalgia [None]

NARRATIVE: CASE EVENT DATE: 20200409
